FAERS Safety Report 8042963-1 (Version None)
Quarter: 2012Q1

REPORT INFORMATION
  Report Type: 
  Country: None (occurrence: None)
  Receive Date: 20120112
  Receipt Date: 20120104
  Transmission Date: 20120608
  Serious: Yes (Hospitalization)
  Sender: FDA-Public Use
  Company Number: PHHY2011FR53710

PATIENT
  Sex: Male

DRUGS (4)
  1. EXELON [Suspect]
     Indication: PARKINSON'S DISEASE
     Dosage: 4.6 MG/24HR
     Route: 062
     Dates: start: 20101001, end: 20110419
  2. MODOPAR [Suspect]
     Indication: PARKINSON'S DISEASE
     Dosage: 125 MG, TID
     Route: 048
     Dates: start: 20100501, end: 20111012
  3. PRAMIPEXOLE DIHYDROCHLORIDE [Concomitant]
     Indication: PARKINSON'S DISEASE
     Dosage: UNK UKN, UNK
     Dates: start: 20080101
  4. LOPERAMIDE [Concomitant]
     Dosage: UNK UKN, PRN

REACTIONS (3)
  - DIARRHOEA [None]
  - WEIGHT DECREASED [None]
  - COLITIS MICROSCOPIC [None]
